FAERS Safety Report 24341142 (Version 1)
Quarter: 2024Q3

REPORT INFORMATION
  Report Type: Spontaneous
  Country: US (occurrence: US)
  Receive Date: 20240919
  Receipt Date: 20240919
  Transmission Date: 20241017
  Serious: No
  Sender: SANDOZ
  Company Number: US-SANDOZ-SDZ2024US081440

PATIENT

DRUGS (1)
  1. COMBIPATCH [Suspect]
     Active Substance: ESTRADIOL\NORETHINDRONE ACETATE
     Indication: Product used for unknown indication
     Dosage: UNK
     Route: 062

REACTIONS (5)
  - Application site hypersensitivity [Unknown]
  - Application site rash [Unknown]
  - Application site pruritus [Unknown]
  - Application site urticaria [Unknown]
  - Application site irritation [Unknown]
